FAERS Safety Report 11324439 (Version 2)
Quarter: 2015Q3

REPORT INFORMATION
  Report Type: Report from Study
  Country: BE (occurrence: BE)
  Receive Date: 20150730
  Receipt Date: 20150903
  Transmission Date: 20151125
  Serious: Yes (Hospitalization)
  Sender: FDA-Public Use
  Company Number: BE-ABBVIE-15P-013-1430093-00

PATIENT
  Age: 63 Year
  Sex: Male

DRUGS (12)
  1. DUODOPA [Suspect]
     Active Substance: CARBIDOPA\LEVODOPA
     Dosage: AM 6ML, CD 5.0ML, FOR 16 HRS, ND 5.3ML/H FOR 8HS AND ED 3.5ML
     Route: 050
     Dates: start: 20150717, end: 20150720
  2. DUODOPA [Suspect]
     Active Substance: CARBIDOPA\LEVODOPA
     Dosage: AM=8ML; CD=5ML/HR DURING 16HRS ; ED=3ML
     Route: 050
     Dates: start: 20120120, end: 20120127
  3. DUODOPA [Suspect]
     Active Substance: CARBIDOPA\LEVODOPA
     Indication: PARKINSON^S DISEASE
     Dosage: UNKNOWN
     Route: 050
     Dates: start: 20120116, end: 20120120
  4. ESCITALOPRAM [Concomitant]
     Active Substance: ESCITALOPRAM OXALATE
     Indication: PRODUCT USED FOR UNKNOWN INDICATION
  5. DUODOPA [Suspect]
     Active Substance: CARBIDOPA\LEVODOPA
     Dosage: DOSES CONTINUOUSLY MONITORED AND ADAPTED.
     Route: 050
     Dates: start: 20120127, end: 20150702
  6. DUODOPA [Suspect]
     Active Substance: CARBIDOPA\LEVODOPA
     Dosage: AD 6.ML, CD 5.5 ML/H FOR 16 HRS, ND 5.3ML/H FOR 8HRS AND ED 5.3ML
     Route: 050
     Dates: start: 20150720, end: 20150727
  7. ASAFLOW [Concomitant]
     Active Substance: ASPIRIN
     Indication: PRODUCT USED FOR UNKNOWN INDICATION
  8. DUODOPA [Suspect]
     Active Substance: CARBIDOPA\LEVODOPA
     Dosage: AM=6ML; CD=5.6ML/HR DURING 16HRS; ED=4ML; ND=5.3ML/HR DURING 8HRS
     Route: 050
     Dates: start: 20150702
  9. DUODOPA [Suspect]
     Active Substance: CARBIDOPA\LEVODOPA
     Dosage: AM = 6 ML, CD = 5.7 ML/H DURING 16H, ED = 3.5 ML, ND = 5.3 ML/H DURING 8H
     Route: 050
     Dates: start: 20150727, end: 20150728
  10. DUODOPA [Suspect]
     Active Substance: CARBIDOPA\LEVODOPA
     Dosage: AM=0ML; CD=5.9ML/HR DURING 16HRS; ED=3ML; ND=4.8ML/HR DURING 8HRS
     Route: 050
     Dates: start: 20150728, end: 20150730
  11. DUODOPA [Suspect]
     Active Substance: CARBIDOPA\LEVODOPA
     Dosage: AM=2ML ; CD=5,7ML/HR DURING 16HRS; ED=3ML; ND=4.8ML/HR DURING 8HRS
     Route: 050
     Dates: start: 20150730, end: 20150811
  12. DUODOPA [Suspect]
     Active Substance: CARBIDOPA\LEVODOPA
     Dosage: AM = 2 ML, CD = 5.8 ML, ED = 3 ML, ND = 4.8 ML/H DURING 16H
     Route: 050
     Dates: start: 20150811

REACTIONS (8)
  - Confusional state [Unknown]
  - Confusional state [Recovering/Resolving]
  - Keloid scar [Unknown]
  - On and off phenomenon [Unknown]
  - Freezing phenomenon [Unknown]
  - On and off phenomenon [Not Recovered/Not Resolved]
  - Hallucination [Not Recovered/Not Resolved]
  - Mental impairment [Unknown]

NARRATIVE: CASE EVENT DATE: 20150717
